FAERS Safety Report 6163692-5 (Version None)
Quarter: 2009Q2

REPORT INFORMATION
  Report Type: 
  Country: None (occurrence: None)
  Receive Date: 20090420
  Receipt Date: 20090420
  Transmission Date: 20091009
  Serious: Yes (Other)
  Sender: FDA-Public Use
  Company Number: None

PATIENT
  Age: 42 Year
  Sex: Female
  Weight: 48.5349 kg

DRUGS (2)
  1. ZEGERID [Suspect]
     Indication: GASTROOESOPHAGEAL REFLUX DISEASE
     Dosage: 1 DAILY PO
     Route: 048
     Dates: start: 20090413, end: 20090417
  2. ZEGERID [Suspect]
     Indication: ULCER
     Dosage: 1 DAILY PO
     Route: 048
     Dates: start: 20090413, end: 20090417

REACTIONS (7)
  - AGITATION [None]
  - DRUG HYPERSENSITIVITY [None]
  - HYPOAESTHESIA EYE [None]
  - HYPOAESTHESIA FACIAL [None]
  - INSOMNIA [None]
  - MUSCULAR WEAKNESS [None]
  - PARAESTHESIA [None]
